FAERS Safety Report 6529754-5 (Version None)
Quarter: 2010Q1

REPORT INFORMATION
  Report Type: 
  Country: None (occurrence: None)
  Receive Date: 20100107
  Receipt Date: 20100104
  Transmission Date: 20100710
  Serious: Yes (Death, Hospitalization, Other)
  Sender: FDA-Public Use
  Company Number: FR-BRISTOL-MYERS SQUIBB COMPANY-13711049

PATIENT
  Age: 86 Year
  Sex: Female

DRUGS (2)
  1. HYDREA [Suspect]
     Indication: SPLENOMEGALY
     Route: 048
     Dates: end: 20061112
  2. MABTHERA [Suspect]
     Indication: CHEMOTHERAPY

REACTIONS (4)
  - ANGIOCENTRIC LYMPHOMA [None]
  - B-CELL LYMPHOMA [None]
  - EPSTEIN-BARR VIRUS INFECTION [None]
  - SKIN NODULE [None]
